FAERS Safety Report 12432409 (Version 1)
Quarter: 2016Q2

REPORT INFORMATION
  Report Type: Spontaneous
  Country: US (occurrence: None)
  Receive Date: 20160602
  Receipt Date: 20160602
  Transmission Date: 20160815
  Serious: Yes (Hospitalization)
  Sender: FDA-Public Use
  Company Number: None

PATIENT
  Age: 61 Year
  Sex: Male
  Weight: 156 kg

DRUGS (4)
  1. VANCOMYCIN [Suspect]
     Active Substance: VANCOMYCIN
     Indication: CELLULITIS
     Route: 040
     Dates: start: 20160413, end: 20160418
  2. PIPERACILLIN/TAZOBACTAM [Suspect]
     Active Substance: PIPERACILLIN SODIUM\TAZOBACTAM SODIUM
     Indication: CELLULITIS
     Route: 040
     Dates: start: 20160413, end: 20160418
  3. VANCOMYCIN [Suspect]
     Active Substance: VANCOMYCIN
     Indication: DIABETIC FOOT
     Route: 040
     Dates: start: 20160413, end: 20160418
  4. PIPERACILLIN/TAZOBACTAM [Suspect]
     Active Substance: PIPERACILLIN SODIUM\TAZOBACTAM SODIUM
     Indication: DIABETIC FOOT
     Route: 040
     Dates: start: 20160413, end: 20160418

REACTIONS (6)
  - Staphylococcal infection [None]
  - Proteus test positive [None]
  - Tubulointerstitial nephritis [None]
  - Haemodialysis [None]
  - Renal tubular necrosis [None]
  - Toxicity to various agents [None]

NARRATIVE: CASE EVENT DATE: 20160418
